FAERS Safety Report 11241337 (Version 2)
Quarter: 2015Q3

REPORT INFORMATION
  Report Type: Report from Study
  Country: US (occurrence: US)
  Receive Date: 20150706
  Receipt Date: 20150731
  Transmission Date: 20151125
  Serious: Yes (Other)
  Sender: FDA-Public Use
  Company Number: US-BAXALTA-2015BAX028639

PATIENT

DRUGS (2)
  1. HUMAN NORMAL IMMUNOGLOBULIN; HYALURONIDASE [Suspect]
     Active Substance: HUMAN IMMUNOGLOBULIN G\HYALURONIDASE RECOMBINANT HUMAN
     Indication: IMMUNODEFICIENCY COMMON VARIABLE
     Dosage: 17 G, UNK
     Route: 058
  2. HUMAN NORMAL IMMUNOGLOBULIN; HYALURONIDASE [Suspect]
     Active Substance: HUMAN IMMUNOGLOBULIN G\HYALURONIDASE RECOMBINANT HUMAN
     Dosage: UNK
     Route: 058

REACTIONS (17)
  - Hypersomnia [Not Recovered/Not Resolved]
  - Fall [Unknown]
  - Sinus congestion [Unknown]
  - Nasal congestion [Unknown]
  - Rhinorrhoea [Unknown]
  - Pain in extremity [Recovering/Resolving]
  - Asthenia [Unknown]
  - Nasal discharge discolouration [Unknown]
  - Burning sensation [Recovering/Resolving]
  - Malaise [Not Recovered/Not Resolved]
  - Fatigue [Unknown]
  - Dyspnoea [Unknown]
  - Ear pain [Recovered/Resolved]
  - Back injury [Unknown]
  - Fall [Unknown]
  - Ligament sprain [Unknown]
  - Weight increased [Unknown]

NARRATIVE: CASE EVENT DATE: 2015
